FAERS Safety Report 8756852 (Version 1)
Quarter: 2012Q4

REPORT INFORMATION
  Report Type: 
  Country: US (occurrence: US)
  Receive Date: 20120828
  Receipt Date: 20120828
  Transmission Date: 20130627
  Serious: No
  Sender: FDA-Public Use
  Company Number: US-BAYER-2012-072020

PATIENT
  Age: 59 Year
  Sex: Male

DRUGS (4)
  1. STAXYN (FDT/ODT) [Suspect]
     Indication: ERECTILE DYSFUNCTION
     Dosage: 4 times about every couple of weeks/about every 2 weeks
     Route: 048
     Dates: start: 201204
  2. STAXYN (FDT/ODT) [Suspect]
     Indication: ERECTILE DYSFUNCTION
     Dosage: 4 times about every couple of weeks/about every 2 weeks
     Route: 048
     Dates: start: 201204
  3. ANTIHYPERTENSIVES [Concomitant]
  4. PRILOSEC [Concomitant]

REACTIONS (1)
  - No adverse event [Recovered/Resolved]
